FAERS Safety Report 25514863 (Version 1)
Quarter: 2025Q3

REPORT INFORMATION
  Report Type: Spontaneous
  Country: US (occurrence: US)
  Receive Date: 20250703
  Receipt Date: 20250703
  Transmission Date: 20251021
  Serious: No
  Sender: RADIUS PHARM
  Company Number: US-RADIUS HEALTH, INC.-2023US005162

PATIENT
  Age: 66 Year
  Sex: Female

DRUGS (17)
  1. TYMLOS [Suspect]
     Active Substance: ABALOPARATIDE
     Indication: Fracture
     Route: 058
     Dates: start: 20230901
  2. TYMLOS [Suspect]
     Active Substance: ABALOPARATIDE
     Route: 058
     Dates: start: 20230901
  3. TYMLOS [Suspect]
     Active Substance: ABALOPARATIDE
     Route: 058
     Dates: start: 20230901
  4. ZYRTEC [Concomitant]
     Active Substance: CETIRIZINE HYDROCHLORIDE
     Indication: Product used for unknown indication
  5. BYSTOLIC [Concomitant]
     Active Substance: NEBIVOLOL HYDROCHLORIDE
     Indication: Product used for unknown indication
  6. MELATONIN [Concomitant]
     Active Substance: MELATONIN
     Indication: Product used for unknown indication
  7. HERBALS\TURMERIC [Concomitant]
     Active Substance: HERBALS\TURMERIC
     Indication: Product used for unknown indication
  8. DIETARY SUPPLEMENT [Concomitant]
     Active Substance: DIETARY SUPPLEMENT
     Indication: Product used for unknown indication
  9. DEMANNOSE [Concomitant]
     Active Substance: DEMANNOSE
     Indication: Product used for unknown indication
  10. GLUCOSAMINE CHONDROITIN WITH VITAMIN D3 EXTRA STRENGTH PREMIUM FORMULA [Concomitant]
     Indication: Product used for unknown indication
  11. JOINT SUPPORT FORMULA [Concomitant]
     Indication: Product used for unknown indication
  12. VITAMIN D NOS [Concomitant]
     Active Substance: CHOLECALCIFEROL\ERGOCALCIFEROL
     Indication: Product used for unknown indication
  13. MAGNESIUM [Concomitant]
     Active Substance: MAGNESIUM
     Indication: Product used for unknown indication
  14. CALCIUM [Concomitant]
     Active Substance: CALCIUM
     Indication: Product used for unknown indication
  15. FLUTICASONE PROPIONATE [Concomitant]
     Active Substance: FLUTICASONE PROPIONATE
     Indication: Product used for unknown indication
  16. VITAMIN B COMPLEX [Concomitant]
     Active Substance: CYANOCOBALAMIN\DEXPANTHENOL\NIACINAMIDE\PYRIDOXINE HYDROCHLORIDE\RIBOFLAVIN 5^-PHOSPHATE SODIUM\THIA
     Indication: Product used for unknown indication
  17. VITAMINS NOS [Concomitant]
     Active Substance: VITAMINS
     Indication: Product used for unknown indication

REACTIONS (7)
  - Heart rate increased [Recovering/Resolving]
  - Feeling abnormal [Not Recovered/Not Resolved]
  - Weight increased [Not Recovered/Not Resolved]
  - Bone loss [Unknown]
  - Malaise [Unknown]
  - Fracture malunion [Recovered/Resolved]
  - Product quality issue [Unknown]

NARRATIVE: CASE EVENT DATE: 20230919
